FAERS Safety Report 19763545 (Version 1)
Quarter: 2021Q3

REPORT INFORMATION
  Report Type: Report from Study
  Country: US (occurrence: US)
  Receive Date: 20210830
  Receipt Date: 20210830
  Transmission Date: 20211014
  Serious: No
  Sender: FDA-Public Use
  Company Number: NVSC2021US195212

PATIENT
  Sex: Male

DRUGS (1)
  1. ENTRESTO [Suspect]
     Active Substance: SACUBITRIL\VALSARTAN
     Indication: PRODUCT USED FOR UNKNOWN INDICATION
     Dosage: 1 DF, BID (4951 MG)
     Route: 048
     Dates: start: 202009

REACTIONS (5)
  - Mouth swelling [Unknown]
  - Swollen tongue [Unknown]
  - Somnolence [Unknown]
  - Wrong technique in product usage process [Unknown]
  - Fatigue [Unknown]
